FAERS Safety Report 4728233-5 (Version None)
Quarter: 2005Q3

REPORT INFORMATION
  Report Type: 
  Country: None (occurrence: None)
  Receive Date: 20050729
  Receipt Date: 20050623
  Transmission Date: 20060218
  Serious: Yes (Hospitalization)
  Sender: FDA-Public Use
  Company Number: US-BRISTOL-MYERS SQUIBB COMPANY-13013578

PATIENT
  Age: 37 Year
  Sex: Male
  Weight: 73 kg

DRUGS (8)
  1. BLEOMYCIN SULFATE [Suspect]
     Indication: HODGKIN'S DISEASE
     Route: 042
     Dates: start: 20050611, end: 20050611
  2. ADRIAMYCIN PFS [Concomitant]
     Indication: HODGKIN'S DISEASE
     Route: 042
  3. VELBAN [Concomitant]
  4. DTIC-DOME [Concomitant]
  5. TYLENOL [Concomitant]
     Indication: PREMEDICATION
  6. BENADRYL [Concomitant]
     Indication: PREMEDICATION
     Route: 042
  7. XANAX [Concomitant]
     Dates: start: 20050523
  8. COMPAZINE [Concomitant]
     Dates: start: 20050609

REACTIONS (1)
  - PYREXIA [None]
